FAERS Safety Report 10208665 (Version 1)
Quarter: 2014Q2

REPORT INFORMATION
  Report Type: Spontaneous
  Country: US (occurrence: US)
  Receive Date: 20140530
  Receipt Date: 20140530
  Transmission Date: 20141212
  Serious: Yes (Hospitalization)
  Sender: FDA-Public Use
  Company Number: US-MERZ PHARMACEUTICALS, LLC DRUG SAFETY-14MRZ-00197

PATIENT
  Sex: Female

DRUGS (1)
  1. CUVPOSA [Suspect]
     Indication: HYPOXIC-ISCHAEMIC ENCEPHALOPATHY
     Dosage: 0.86ML VIA G-TUBE EVERY 8 HOURS

REACTIONS (1)
  - Dyspnoea [None]
